FAERS Safety Report 11467979 (Version 1)
Quarter: 2015Q3

REPORT INFORMATION
  Report Type: Spontaneous
  Country: US (occurrence: US)
  Receive Date: 20150908
  Receipt Date: 20150908
  Transmission Date: 20151125
  Serious: No
  Sender: FDA-Public Use
  Company Number: US-PFIZER INC-2015285470

PATIENT
  Sex: Male

DRUGS (2)
  1. CHAPSTICK LIP BALM [Suspect]
     Active Substance: ISOPROPYL MYRISTATE
     Indication: ORAL DISCOMFORT
     Dosage: UNK
  2. CHAPSTICK SUN DEFENSE [Suspect]
     Active Substance: OCTINOXATE\OCTISALATE\OCTOCRYLENE\OXYBENZONE\PETROLATUM
     Indication: ORAL DISCOMFORT

REACTIONS (1)
  - Drug ineffective [Unknown]
